FAERS Safety Report 13213816 (Version 1)
Quarter: 2017Q1

REPORT INFORMATION
  Report Type: Spontaneous
  Country: US (occurrence: US)
  Receive Date: 20170209
  Receipt Date: 20170209
  Transmission Date: 20170428
  Serious: No
  Sender: FDA-Public Use
  Company Number: US-ALLERGAN-1666172US

PATIENT
  Age: 72 Year
  Sex: Female
  Weight: 61.22 kg

DRUGS (3)
  1. BOTOX COSMETIC [Suspect]
     Active Substance: ONABOTULINUMTOXINA
     Indication: SKIN WRINKLING
     Dosage: 1.25 UNITS, SINGLE
     Route: 030
     Dates: start: 20151217, end: 20151217
  2. BOTOX COSMETIC [Suspect]
     Active Substance: ONABOTULINUMTOXINA
     Dosage: 1.25 UNITS, SINGLE
     Route: 030
     Dates: start: 20151217, end: 20151217
  3. JUVEDERM ULTRA XE [Concomitant]
     Indication: SKIN WRINKLING
     Dosage: UNK
     Dates: start: 20151217, end: 20151217

REACTIONS (3)
  - Off label use [Unknown]
  - Lip swelling [Not Recovered/Not Resolved]
  - Drug effect prolonged [Not Recovered/Not Resolved]

NARRATIVE: CASE EVENT DATE: 20151217
